FAERS Safety Report 20228860 (Version 1)
Quarter: 2021Q4

REPORT INFORMATION
  Report Type: Spontaneous
  Country: US (occurrence: US)
  Receive Date: 20211225
  Receipt Date: 20211225
  Transmission Date: 20220304
  Serious: No
  Sender: FDA-Public Use
  Company Number: US-SA-SAC20211223000568

PATIENT
  Age: 57 Year
  Sex: Male

DRUGS (1)
  1. DUPIXENT [Suspect]
     Active Substance: DUPILUMAB
     Dosage: 300 MG
     Route: 030
     Dates: start: 20210924

REACTIONS (3)
  - Feeling hot [Unknown]
  - Cold sweat [Unknown]
  - Product use issue [Unknown]

NARRATIVE: CASE EVENT DATE: 20210924
